FAERS Safety Report 26122329 (Version 1)
Quarter: 2025Q4

REPORT INFORMATION
  Report Type: Spontaneous
  Country: CN (occurrence: CN)
  Receive Date: 20251204
  Receipt Date: 20251204
  Transmission Date: 20260117
  Serious: Yes (Hospitalization, Other)
  Sender: BAYER HEALTHCARE PHARMACEUTICALS INC.
  Company Number: CN-BAYER-2025A159903

PATIENT
  Age: 89 Year
  Sex: Male
  Weight: 80 kg

DRUGS (3)
  1. AVELOX [Suspect]
     Active Substance: MOXIFLOXACIN HYDROCHLORIDE
     Indication: Pneumonia
     Dosage: 0.4 G, QD
     Route: 048
     Dates: start: 202510, end: 20251126
  2. AVELOX [Suspect]
     Active Substance: MOXIFLOXACIN HYDROCHLORIDE
     Indication: Anti-infective therapy
  3. AMBROXOL [Concomitant]
     Active Substance: AMBROXOL
     Dosage: UNK
     Dates: start: 202510

REACTIONS (6)
  - Dermatitis allergic [Recovering/Resolving]
  - Epidermolysis bullosa [Recovering/Resolving]
  - Pemphigus [None]
  - Pyrexia [Recovered/Resolved]
  - Skin disorder [Recovering/Resolving]
  - Blister [None]

NARRATIVE: CASE EVENT DATE: 20251126
